FAERS Safety Report 18964654 (Version 2)
Quarter: 2022Q1

REPORT INFORMATION
  Report Type: Spontaneous
  Country: US (occurrence: US)
  Receive Date: 20210303
  Receipt Date: 20220224
  Transmission Date: 20220424
  Serious: No
  Sender: FDA-Public Use
  Company Number: US-AMNEAL PHARMACEUTICALS-2020-AMRX-04035

PATIENT
  Sex: Female
  Weight: 63 kg

DRUGS (22)
  1. RYTARY [Interacting]
     Active Substance: CARBIDOPA\LEVODOPA
     Indication: Parkinson^s disease
     Dosage: 48.75/195 MG, 2 CAPSULES, 5X/DAY AT 6AM, 9AM, 12PM, 3PM AND 6PM
     Route: 065
  2. RYTARY [Interacting]
     Active Substance: CARBIDOPA\LEVODOPA
     Dosage: 48.75/195 MG, 2 CAPSULES 6AM-9AM-12NN-3PM AND 6PM, THEN AT 9PM
     Route: 065
  3. RYTARY [Interacting]
     Active Substance: CARBIDOPA\LEVODOPA
     Dosage: 23.75/95 MG, 3 CAPSULE QID
     Route: 048
     Dates: start: 20210719
  4. CARBIDOPA\LEVODOPA [Interacting]
     Active Substance: CARBIDOPA\LEVODOPA
     Indication: Parkinson^s disease
     Dosage: 2 DOSAGE FORM, 1X/DAY AT BEDTIME
     Route: 065
  5. CARBIDOPA\LEVODOPA [Suspect]
     Active Substance: CARBIDOPA\LEVODOPA
     Indication: Parkinson^s disease
     Dosage: 0.5 TABLETS, 1X/DAY AT 9PM
  6. GOCOVRI [Interacting]
     Active Substance: AMANTADINE
     Indication: Dyskinesia
     Dosage: 68.5 MILLIGRAM, 1X/DAY
     Route: 048
     Dates: start: 20201021, end: 20201108
  7. GOCOVRI [Interacting]
     Active Substance: AMANTADINE
     Dosage: 68.5 MILLIGRAM, EVERY 48 HOURS
     Route: 048
     Dates: start: 20201110, end: 2020
  8. AMANTADINE [Suspect]
     Active Substance: AMANTADINE
     Indication: Product used for unknown indication
     Dosage: UNK
     Route: 065
     Dates: end: 20201224
  9. PRAMIPEXOLE [Interacting]
     Active Substance: PRAMIPEXOLE
     Indication: Parkinson^s disease
     Dosage: 0.25 MILLIGRAM, 6X/DAY
     Route: 065
  10. PRAMIPEXOLE [Interacting]
     Active Substance: PRAMIPEXOLE
     Dosage: 0.5MG, 1 CAPSULES, 6AM-9AM-12NN-3PM AND 6PM, THEN AT 9PM
     Route: 065
  11. ASPIRIN [Concomitant]
     Active Substance: ASPIRIN
     Indication: Product used for unknown indication
     Dosage: UNK
     Route: 065
  12. VITAMIN B12 [Concomitant]
     Active Substance: CYANOCOBALAMIN
     Indication: Supplementation therapy
     Dosage: UNK
     Route: 065
  13. LORATADINE [Concomitant]
     Active Substance: LORATADINE
     Indication: Product used for unknown indication
     Dosage: UNK
     Route: 065
  14. COLACE [Concomitant]
     Active Substance: DOCUSATE SODIUM
     Indication: Product used for unknown indication
     Dosage: UNK
     Route: 065
  15. LISINOPRIL [Concomitant]
     Active Substance: LISINOPRIL
     Indication: Product used for unknown indication
     Dosage: UNK
     Route: 065
  16. MIRALAX [Concomitant]
     Active Substance: POLYETHYLENE GLYCOL 3350
     Indication: Product used for unknown indication
     Dosage: UNK
     Route: 065
  17. OMEPRAZOLE [Concomitant]
     Active Substance: OMEPRAZOLE
     Indication: Product used for unknown indication
     Dosage: UNK
     Route: 065
  18. PEPSIN [Concomitant]
     Active Substance: PEPSIN
     Indication: Product used for unknown indication
     Dosage: UNK
     Route: 065
  19. SENOKOT [Concomitant]
     Active Substance: SENNOSIDES
     Indication: Product used for unknown indication
     Dosage: UNK
     Route: 065
  20. VITAMIN C [Concomitant]
     Active Substance: ASCORBIC ACID
     Indication: Supplementation therapy
     Dosage: UNK
     Route: 065
  21. VITAMIN E [Concomitant]
     Active Substance: .ALPHA.-TOCOPHEROL
     Indication: Supplementation therapy
     Dosage: UNK
     Route: 065
  22. SIMVASTATIN [Concomitant]
     Active Substance: SIMVASTATIN
     Indication: Product used for unknown indication
     Dosage: UNK
     Route: 065

REACTIONS (5)
  - Movement disorder [Not Recovered/Not Resolved]
  - Drug ineffective [Unknown]
  - Drug interaction [Unknown]
  - Therapeutic response shortened [Unknown]
  - Malaise [Not Recovered/Not Resolved]

NARRATIVE: CASE EVENT DATE: 20200101
